FAERS Safety Report 22129707 (Version 5)
Quarter: 2023Q2

REPORT INFORMATION
  Report Type: Spontaneous
  Country: IT (occurrence: IT)
  Receive Date: 20230323
  Receipt Date: 20230413
  Transmission Date: 20230721
  Serious: Yes (Other)
  Sender: FDA-Public Use
  Company Number: IT-LEO Pharma-350241

PATIENT
  Age: 83 Year
  Sex: Male

DRUGS (9)
  1. Cardura (DOXAZOSIN) [Concomitant]
     Indication: Product used for unknown indication
  2. DEVICE [Suspect]
     Active Substance: DEVICE
     Indication: Product used for unknown indication
  3. RAMIPRIL [Concomitant]
     Active Substance: RAMIPRIL
     Indication: Product used for unknown indication
     Dosage: 1 TAB
  4. TRALOKINUMAB [Suspect]
     Active Substance: TRALOKINUMAB
     Indication: Product used for unknown indication
     Dates: start: 20230209, end: 20230313
  5. TRALOKINUMAB [Suspect]
     Active Substance: TRALOKINUMAB
     Indication: Product used for unknown indication
     Dates: start: 20230209, end: 20230313
  6. TRALOKINUMAB [Suspect]
     Active Substance: TRALOKINUMAB
     Indication: Product used for unknown indication
     Dates: start: 20230209, end: 20230313
  7. TRALOKINUMAB [Suspect]
     Active Substance: TRALOKINUMAB
     Indication: Product used for unknown indication
     Dates: start: 20230209, end: 20230313
  8. Fleiderine [Concomitant]
     Indication: Product used for unknown indication
  9. XARELTO [Concomitant]
     Active Substance: RIVAROXABAN
     Indication: Product used for unknown indication

REACTIONS (7)
  - Eczema [Recovering/Resolving]
  - Psoriasis [Unknown]
  - Eczema [Recovering/Resolving]
  - Type III immune complex mediated reaction [Unknown]
  - Purpura [Unknown]
  - Pruritus [Recovering/Resolving]
  - Pruritus [Recovering/Resolving]

NARRATIVE: CASE EVENT DATE: 20230309
